FAERS Safety Report 9437439 (Version 1)
Quarter: 2013Q3

REPORT INFORMATION
  Report Type: Spontaneous
  Country: HR (occurrence: None)
  Receive Date: 20130731
  Receipt Date: 20130731
  Transmission Date: 20140515
  Serious: Yes (Other)
  Sender: FDA-Public Use
  Company Number: 2013-002355

PATIENT
  Age: 78 Year
  Sex: Female
  Weight: 58 kg

DRUGS (4)
  1. ACTONEL (RISEDRONATE SODIUM) TABLET, 35MG [Suspect]
     Indication: OSTEOPOROSIS
     Route: 048
     Dates: start: 200909, end: 20130715
  2. TRITACE (RAMIPRIL) [Concomitant]
  3. DAROB (SOTALOL HYDROCHLORIDE) [Concomitant]
  4. NORVASC (AMLODIPINE BESILATE) [Concomitant]

REACTIONS (2)
  - Hepatitis cholestatic [None]
  - Hyperbilirubinaemia [None]
